FAERS Safety Report 8818264 (Version 2)
Quarter: 2012Q4

REPORT INFORMATION
  Report Type: 
  Country: US (occurrence: US)
  Receive Date: 20121001
  Receipt Date: 20121018
  Transmission Date: 20130627
  Serious: Yes (Other)
  Sender: FDA-Public Use
  Company Number: US-GLAXOSMITHKLINE-A0970059A

PATIENT
  Age: 48 Year
  Weight: 86.71 kg

DRUGS (25)
  1. BENLYSTA [Suspect]
     Indication: SYSTEMIC LUPUS ERYTHEMATOSUS
     Route: 042
     Dates: start: 20111108
  2. HYDROXYCHLOROQUINE SULFATE [Concomitant]
  3. PREDNISONE [Concomitant]
  4. OMEPRAZOLE [Concomitant]
  5. LISINOPRIL [Concomitant]
  6. VITAMIN D [Concomitant]
  7. FOLGARD [Concomitant]
  8. TOPAMAX [Concomitant]
  9. AMBIEN [Concomitant]
  10. CITALOPRAM [Concomitant]
  11. RANITIDINE [Concomitant]
  12. CALTRATE [Concomitant]
  13. ZOFRAN [Concomitant]
  14. IMITREX [Concomitant]
  15. MULTIVITAMIN [Concomitant]
  16. VITAMIN C [Concomitant]
  17. SLOW-FE [Concomitant]
  18. NORCO [Concomitant]
  19. BENZOIN TINCTURE [Concomitant]
  20. FIORICET [Concomitant]
  21. LIDOCAINE VISCOUS [Concomitant]
  22. VOLTAREN GEL [Concomitant]
     Route: 061
  23. NYSTATIN CREAM [Concomitant]
     Route: 061
  24. ICAPS [Concomitant]
  25. AMMONIUM LACTATE [Concomitant]

REACTIONS (5)
  - Acute febrile neutrophilic dermatosis [Unknown]
  - Leukocytoclastic vasculitis [Unknown]
  - Schnitzler^s syndrome [Unknown]
  - Pyrexia [Not Recovered/Not Resolved]
  - Rash [Unknown]
